FAERS Safety Report 18600500 (Version 1)
Quarter: 2020Q4

REPORT INFORMATION
  Report Type: Not Available
  Country: None (occurrence: None)
  Receive Date: 20201210
  Receipt Date: 20201210
  Transmission Date: 20210114
  Serious: No
  Sender: FDA-Public Use
  Company Number: US-AKORN PHARMACEUTICALS-2020AKN01331

PATIENT
  Age: 35 Year
  Sex: Female

DRUGS (1)
  1. MYORISAN [Suspect]
     Active Substance: ISOTRETINOIN

REACTIONS (6)
  - Off label use [Recovered/Resolved]
  - Vision blurred [None]
  - Dry eye [None]
  - Headache [Recovered/Resolved]
  - Intraocular pressure test abnormal [Unknown]
  - Visual impairment [None]

NARRATIVE: CASE EVENT DATE: 20200702
